FAERS Safety Report 12529815 (Version 1)
Quarter: 2016Q3

REPORT INFORMATION
  Report Type: Spontaneous
  Country: GB (occurrence: GB)
  Receive Date: 20160706
  Receipt Date: 20160706
  Transmission Date: 20161109
  Serious: Yes (Other)
  Sender: FDA-Public Use
  Company Number: GB-AUROBINDO-AUR-APL-2016-08341

PATIENT
  Age: 66 Year
  Sex: Male
  Weight: 59 kg

DRUGS (7)
  1. DICLOFENAC DIETHYLAMMONIUM [Concomitant]
     Dosage: 1 DF, 3 TIMES A DAY
     Route: 065
     Dates: start: 20160317, end: 20160414
  2. SILDENAFIL. [Concomitant]
     Active Substance: SILDENAFIL
     Indication: PRODUCT USED FOR UNKNOWN INDICATION
     Dosage: USE AS DIRECTED
     Route: 065
     Dates: start: 20150424
  3. NEDITOL [Suspect]
     Active Substance: TOLTERODINE
     Indication: PRODUCT USED FOR UNKNOWN INDICATION
     Route: 065
     Dates: start: 20160531
  4. OMEPRAZOLE. [Concomitant]
     Active Substance: OMEPRAZOLE
     Indication: GASTROINTESTINAL DISORDER
     Dosage: 1 DF, ONCE A DAY
     Route: 065
     Dates: start: 20160304
  5. SOLIFENACIN [Concomitant]
     Active Substance: SOLIFENACIN
     Indication: PRODUCT USED FOR UNKNOWN INDICATION
     Dosage: 1 DF, ONCE A DAY
     Route: 065
     Dates: start: 20160304, end: 20160531
  6. FLECAINIDE [Suspect]
     Active Substance: FLECAINIDE
     Indication: PRODUCT USED FOR UNKNOWN INDICATION
     Dosage: 1 DF, TWO TIMES A DAY
     Route: 065
     Dates: start: 20160304
  7. SIMVASTATIN. [Concomitant]
     Active Substance: SIMVASTATIN
     Indication: HYPERCHOLESTEROLAEMIA
     Dosage: 1 DF, ONCE A DAY, AT NIGHT
     Route: 065
     Dates: start: 20160304

REACTIONS (2)
  - Abdominal discomfort [Unknown]
  - Chest pain [Recovered/Resolved]

NARRATIVE: CASE EVENT DATE: 20160613
